FAERS Safety Report 4353521-4 (Version None)
Quarter: 2004Q2

REPORT INFORMATION
  Report Type: 
  Country: None (occurrence: None)
  Receive Date: 20040505
  Receipt Date: 20040426
  Transmission Date: 20050107
  Serious: Yes (Hospitalization)
  Sender: FDA-Public Use
  Company Number: IT-ROCHE-365830

PATIENT
  Age: 66 Year
  Sex: Female

DRUGS (5)
  1. ROCEPHIN [Suspect]
     Indication: PROPHYLAXIS
     Dosage: FORMULATION REPORTED AS VIAL.
     Route: 042
     Dates: start: 20040326, end: 20040402
  2. VANCOMICINA [Concomitant]
     Indication: PROPHYLAXIS
     Dosage: FORMULATION REPORTED AS VIAL.
     Route: 042
     Dates: start: 20040315, end: 20040408
  3. CIPROXIN [Concomitant]
     Dosage: FORMULATION REPORTED AS VIAL.
     Route: 042
     Dates: start: 20040215, end: 20040415
  4. ENOXAPARIN SODIUM [Concomitant]
     Route: 058
     Dates: start: 20040412, end: 20040413
  5. SELEPARINA [Concomitant]
     Dates: end: 20040412

REACTIONS (3)
  - EOSINOPHIL COUNT INCREASED [None]
  - RASH MACULO-PAPULAR [None]
  - TRANSAMINASES INCREASED [None]
